FAERS Safety Report 14587117 (Version 1)
Quarter: 2018Q1

REPORT INFORMATION
  Report Type: Spontaneous
  Country: US (occurrence: US)
  Receive Date: 20180228
  Receipt Date: 20180228
  Transmission Date: 20180509
  Serious: Yes (Life-Threatening)
  Sender: FDA-Public Use
  Company Number: None

PATIENT
  Age: 79 Year
  Sex: Female
  Weight: 78.93 kg

DRUGS (1)
  1. ALLOPURINOL 100MG [Suspect]
     Active Substance: ALLOPURINOL
     Indication: GOUT
     Route: 048
     Dates: start: 20171214, end: 20180212

REACTIONS (11)
  - Dehydration [None]
  - Hypersensitivity [None]
  - Urticaria [None]
  - Pruritus [None]
  - Rash erythematous [None]
  - Hyperkalaemia [None]
  - General physical health deterioration [None]
  - Herpes zoster [None]
  - Rash pruritic [None]
  - Acute kidney injury [None]
  - Metabolic acidosis [None]

NARRATIVE: CASE EVENT DATE: 20180222
